FAERS Safety Report 17256485 (Version 3)
Quarter: 2025Q2

REPORT INFORMATION
  Report Type: Spontaneous
  Country: US (occurrence: US)
  Receive Date: 20200110
  Receipt Date: 20250519
  Transmission Date: 20250717
  Serious: Yes (Death, Other)
  Sender: LABORATOIRES SERB
  Company Number: US-SERB S.A.S.-2078802

PATIENT
  Age: 64 Year
  Sex: Male

DRUGS (7)
  1. CYANOKIT [Suspect]
     Active Substance: HYDROXOCOBALAMIN
     Indication: Vasoplegia syndrome
  2. EPINEPHRINE [Concomitant]
     Active Substance: EPINEPHRINE
  3. ANGIOTENSIN II [Concomitant]
     Active Substance: ANGIOTENSIN II
  4. ASCORBIC ACID [Suspect]
     Active Substance: ASCORBIC ACID
  5. METHYLENE BLUE [Concomitant]
     Active Substance: METHYLENE BLUE
  6. VASOPRESSIN [Concomitant]
     Active Substance: VASOPRESSIN
  7. NOREPINEPHRINE [Concomitant]
     Active Substance: NOREPINEPHRINE

REACTIONS (7)
  - Multiple organ dysfunction syndrome [Fatal]
  - Crystal nephropathy [Not Recovered/Not Resolved]
  - Neuralgia [Not Recovered/Not Resolved]
  - Toxicity to various agents [Not Recovered/Not Resolved]
  - Drug ineffective for unapproved indication [Unknown]
  - Product use issue [Recovered/Resolved]
  - Product use in unapproved indication [Recovered/Resolved]
